FAERS Safety Report 8498271-8 (Version None)
Quarter: 2012Q3

REPORT INFORMATION
  Report Type: 
  Country: None (occurrence: None)
  Receive Date: 20120709
  Receipt Date: 20120621
  Transmission Date: 20120928
  Serious: No
  Sender: FDA-Public Use
  Company Number: US-AMGEN-USASP2012038626

PATIENT
  Age: 33 Year
  Sex: Female

DRUGS (1)
  1. ENBREL [Suspect]
     Indication: PSORIASIS
     Dosage: 50 MG, QWK
     Dates: start: 20040901

REACTIONS (6)
  - OROPHARYNGEAL PAIN [None]
  - PYREXIA [None]
  - ABSCESS [None]
  - RESPIRATORY TRACT CONGESTION [None]
  - FATIGUE [None]
  - PAIN [None]
